FAERS Safety Report 18367759 (Version 1)
Quarter: 2020Q4

REPORT INFORMATION
  Report Type: Not Available
  Country: US (occurrence: US)
  Receive Date: 20201009
  Receipt Date: 20201009
  Transmission Date: 20210114
  Serious: No
  Sender: FDA-Public Use
  Company Number: US-C B FLEET CO INC-202005-US-001852

PATIENT
  Sex: Female

DRUGS (1)
  1. MONISTAT 1 COMBINATION PACK [Suspect]
     Active Substance: MICONAZOLE NITRATE
     Indication: FUNGAL INFECTION
     Dosage: DOSAGE UNKNOWN, USED PRODUCT AFTER USING MONISTAT 3-DAY.
     Route: 067

REACTIONS (3)
  - Vaginal mucosal blistering [Not Recovered/Not Resolved]
  - Inappropriate schedule of product administration [None]
  - Vulvovaginal swelling [Not Recovered/Not Resolved]
